FAERS Safety Report 6806625-8 (Version None)
Quarter: 2010Q2

REPORT INFORMATION
  Report Type: 
  Country: None (occurrence: None)
  Receive Date: 20100629
  Receipt Date: 20080414
  Transmission Date: 20101027
  Serious: No
  Sender: FDA-Public Use
  Company Number: US-PFIZER INC-2008028755

PATIENT
  Sex: Female

DRUGS (4)
  1. XANAX XR [Suspect]
     Indication: ANXIETY
     Route: 048
     Dates: start: 20080305
  2. SYNTHROID [Concomitant]
  3. GEMFIBROZIL [Concomitant]
  4. VITAMINS [Concomitant]

REACTIONS (3)
  - ANXIETY [None]
  - CONFUSIONAL STATE [None]
  - DRUG INEFFECTIVE [None]
